FAERS Safety Report 7773476-X (Version None)
Quarter: 2011Q3

REPORT INFORMATION
  Report Type: 
  Country: None (occurrence: None)
  Receive Date: 20110922
  Receipt Date: 20110913
  Transmission Date: 20111222
  Serious: Yes (Hospitalization)
  Sender: FDA-Public Use
  Company Number: US-RB-032206-11

PATIENT
  Sex: Female

DRUGS (1)
  1. SUBOXONE [Suspect]
     Indication: PRODUCT USED FOR UNKNOWN INDICATION
     Route: 060

REACTIONS (5)
  - OSTEONECROSIS [None]
  - UPPER LIMB FRACTURE [None]
  - NERVE INJURY [None]
  - LIGAMENT INJURY [None]
  - FALL [None]
